FAERS Safety Report 4405333-0 (Version None)
Quarter: 2004Q3

REPORT INFORMATION
  Report Type: 
  Country: None (occurrence: None)
  Receive Date: 20040715
  Receipt Date: 20040630
  Transmission Date: 20050211
  Serious: Yes (Hospitalization)
  Sender: FDA-Public Use
  Company Number: 237823

PATIENT
  Age: 54 Year
  Sex: Male
  Weight: 47 kg

DRUGS (4)
  1. NOVO RAPID CU FLEXPEN (INSULIN ASPART) SOLUTION FOR INJECTION, 100U/L [Suspect]
     Indication: INSULIN-REQUIRING TYPE II DIABETES MELLITUS
     Dosage: 18 IU, QD SUBCUTANEOUS
     Route: 058
     Dates: start: 20040609, end: 20040622
  2. NOVORAPID 30 MIX CHU PENFILL (INSULIN ASPART) SUSPENSION FOR INJECTION [Suspect]
     Indication: INSULIN-REQUIRING TYPE II DIABETES MELLITUS
     Dosage: 10 IU, QD, SUBCUTANEOUS
     Route: 058
     Dates: start: 20040609, end: 20040622
  3. PRAVASTATIN SODIUM [Concomitant]
  4. ALLOPURINOL [Concomitant]

REACTIONS (2)
  - ALANINE AMINOTRANSFERASE INCREASED [None]
  - ASPARTATE AMINOTRANSFERASE INCREASED [None]
